FAERS Safety Report 24607542 (Version 1)
Quarter: 2024Q4

REPORT INFORMATION
  Report Type: Spontaneous
  Country: HU (occurrence: HU)
  Receive Date: 20241112
  Receipt Date: 20241112
  Transmission Date: 20250114
  Serious: Yes (Other)
  Sender: RANBAXY
  Company Number: HU-SUN PHARMACEUTICAL INDUSTRIES LTD-2024R1-478188

PATIENT
  Age: 31 Year
  Sex: Female

DRUGS (8)
  1. BRIVARACETAM [Suspect]
     Active Substance: BRIVARACETAM
     Indication: Partial seizures
     Dosage: UNK
     Route: 065
  2. CARBAMAZEPINE [Suspect]
     Active Substance: CARBAMAZEPINE
     Indication: Partial seizures
     Dosage: UNK
     Route: 065
  3. GABAPENTIN [Suspect]
     Active Substance: GABAPENTIN
     Indication: Partial seizures
     Dosage: UNK
     Route: 065
  4. LACOSAMIDE [Suspect]
     Active Substance: LACOSAMIDE
     Indication: Partial seizures
     Dosage: UNK
     Route: 065
  5. LAMOTRIGINE [Suspect]
     Active Substance: LAMOTRIGINE
     Indication: Partial seizures
     Dosage: UNK
     Route: 065
  6. LEVETIRACETAM [Suspect]
     Active Substance: LEVETIRACETAM
     Indication: Partial seizures
     Dosage: UNK
     Route: 065
  7. TOPIRAMATE [Suspect]
     Active Substance: TOPIRAMATE
     Indication: Partial seizures
     Dosage: UNK
     Route: 065
  8. VALPROIC ACID [Suspect]
     Active Substance: VALPROIC ACID
     Indication: Partial seizures
     Dosage: UNK
     Route: 065

REACTIONS (1)
  - Drug resistance [Unknown]
